FAERS Safety Report 16036913 (Version 1)
Quarter: 2019Q1

REPORT INFORMATION
  Report Type: Spontaneous
  Country: GB (occurrence: GB)
  Receive Date: 20190305
  Receipt Date: 20190305
  Transmission Date: 20190418
  Serious: Yes (Other)
  Sender: FDA-Public Use
  Company Number: GB-PFIZER INC-07H-167-0312765-00

PATIENT
  Age: 48 Year
  Sex: Male
  Weight: 78 kg

DRUGS (3)
  1. CHAMPIX [Suspect]
     Active Substance: VARENICLINE TARTRATE
     Dosage: UNK
     Route: 048
  2. FENTANYL. [Interacting]
     Active Substance: FENTANYL
     Indication: INDUCTION OF ANAESTHESIA
     Dosage: 100 UG, UNK
     Route: 040
     Dates: start: 20070530, end: 20070530
  3. PROPOFOL. [Interacting]
     Active Substance: PROPOFOL
     Indication: ANAESTHESIA
     Dosage: 600 MG, UNK
     Route: 040
     Dates: start: 20070530, end: 20070530

REACTIONS (3)
  - Drug ineffective [Recovered/Resolved]
  - Extra dose administered [Recovered/Resolved]
  - Drug interaction [Recovered/Resolved]

NARRATIVE: CASE EVENT DATE: 20070530
